FAERS Safety Report 22539650 (Version 2)
Quarter: 2023Q2

REPORT INFORMATION
  Report Type: Report from Study
  Country: DE (occurrence: DE)
  Receive Date: 20230609
  Receipt Date: 20230612
  Transmission Date: 20230722
  Serious: No
  Sender: FDA-Public Use
  Company Number: DE-HBP-2023DE028922

PATIENT
  Age: 85 Year
  Sex: Female
  Weight: 62.7 kg

DRUGS (9)
  1. AKYNZEO (NETUPITANT\PALONOSETRON) [Suspect]
     Active Substance: NETUPITANT\PALONOSETRON
     Indication: Antiemetic supportive care
     Dosage: 1 DOSAGE FORM, SINGLE
     Route: 048
     Dates: start: 20230329, end: 20230329
  2. AKYNZEO (NETUPITANT\PALONOSETRON) [Suspect]
     Active Substance: NETUPITANT\PALONOSETRON
     Dosage: 1 DOSAGE FORM, SINGLE
     Route: 048
     Dates: start: 20230419, end: 20230419
  3. AKYNZEO (NETUPITANT\PALONOSETRON) [Suspect]
     Active Substance: NETUPITANT\PALONOSETRON
     Dosage: 1 DOSAGE FORM, SINGLE
     Route: 048
     Dates: start: 20230510, end: 20230510
  4. CARBOPLATIN [Concomitant]
     Active Substance: CARBOPLATIN
     Indication: Chemotherapy
     Dosage: AUC5, UNKNOWN
     Route: 042
     Dates: start: 20230329, end: 20230329
  5. CARBOPLATIN [Concomitant]
     Active Substance: CARBOPLATIN
     Dosage: AUC5, UNKNOWN
     Route: 042
     Dates: start: 20230419, end: 20230419
  6. CARBOPLATIN [Concomitant]
     Active Substance: CARBOPLATIN
     Dosage: AUC5, UNKNOWN
     Route: 042
     Dates: start: 20230510, end: 20230510
  7. NEBIVOLOL [Concomitant]
     Active Substance: NEBIVOLOL
     Dosage: 5 MILLIGRAM, UNKNOWN
  8. EPROSARTAN [Concomitant]
     Active Substance: EPROSARTAN
     Dosage: 600 MILLIGRAM, UNKNOWN
  9. INDAPAMIDE [Concomitant]
     Active Substance: INDAPAMIDE
     Dosage: 2.5 MILLIGRAM, UNKNOWN

REACTIONS (3)
  - Hypertension [Recovered/Resolved]
  - Constipation [Recovered/Resolved]
  - Fatigue [Recovering/Resolving]

NARRATIVE: CASE EVENT DATE: 20230510
